FAERS Safety Report 5534182-5 (Version None)
Quarter: 2007Q4

REPORT INFORMATION
  Report Type: 
  Country: None (occurrence: None)
  Receive Date: 20071205
  Receipt Date: 20071130
  Transmission Date: 20080405
  Serious: Yes (Life-Threatening)
  Sender: FDA-Public Use
  Company Number: RO-BAYER-200717547GPV

PATIENT
  Age: 71 Year
  Sex: Female

DRUGS (1)
  1. ULTRAVIST 370 / IOPROMID [Suspect]
     Indication: COMPUTERISED TOMOGRAM
     Dosage: TOTAL DAILY DOSE: 100 ML
     Route: 040
     Dates: start: 20071123, end: 20071123

REACTIONS (6)
  - AGITATION [None]
  - BLOOD PRESSURE DECREASED [None]
  - CIRCULATORY COLLAPSE [None]
  - FACE OEDEMA [None]
  - PULSE ABSENT [None]
  - RESPIRATORY DISTRESS [None]
